FAERS Safety Report 5152458-0 (Version None)
Quarter: 2006Q4

REPORT INFORMATION
  Report Type: 
  Country: None (occurrence: None)
  Receive Date: 20061109
  Receipt Date: 20061030
  Transmission Date: 20070319
  Serious: Yes (Hospitalization, Disabling)
  Sender: FDA-Public Use
  Company Number: GXKR2006GB06881

PATIENT
  Sex: Female
  Weight: 44 kg

DRUGS (9)
  1. TRIFLUOPERAZINE HCL [Suspect]
     Dosage: 10 MG QD; ORAL
     Route: 048
  2. PROZAC [Suspect]
     Dosage: 60 MG, QD; ORAL
     Route: 048
  3. CEFOTAXIME [Concomitant]
  4. CIPROFLOXACIN [Concomitant]
  5. DIAZEPAM [Concomitant]
  6. FOLIC ACID [Concomitant]
  7. PABRINEX       (ASCORBIC ACID, NICOTINAMIDE, PYRIDOXINE HYDROCHLORIDE, [Concomitant]
  8. THIAMINE [Concomitant]
  9. VITAMIN B COMPLEX   (CALCIUM PANTOTHENATE, NICOTINAMIDE, PYRIDOXINE HY [Concomitant]

REACTIONS (1)
  - NEPHRITIS INTERSTITIAL [None]
